FAERS Safety Report 7767388-5 (Version None)
Quarter: 2011Q3

REPORT INFORMATION
  Report Type: 
  Country: None (occurrence: None)
  Receive Date: 20110922
  Receipt Date: 20110413
  Transmission Date: 20111222
  Serious: No
  Sender: FDA-Public Use
  Company Number: US-ASTRAZENECA-2009UW14360

PATIENT
  Age: 51 Year
  Sex: Male
  Weight: 129.3 kg

DRUGS (7)
  1. VALIUM [Concomitant]
     Dates: start: 20080101
  2. SEROQUEL [Suspect]
     Route: 048
     Dates: start: 20070907
  3. VYTORIN [Concomitant]
     Dates: start: 20080101
  4. MAXALT [Concomitant]
     Dosage: PRN
     Dates: start: 20080101
  5. SEROQUEL [Suspect]
     Indication: DEPRESSION
     Route: 048
     Dates: start: 20050101
  6. METFORMIN HCL [Concomitant]
     Dates: start: 20080101
  7. TRAZODONE HYDROCHLORIDE [Concomitant]
     Dosage: 150 MG ONE-HALF TABLET HS
     Route: 048
     Dates: start: 20070907

REACTIONS (5)
  - TYPE 2 DIABETES MELLITUS [None]
  - BLOOD TRIGLYCERIDES INCREASED [None]
  - BACK INJURY [None]
  - BLOOD CHOLESTEROL INCREASED [None]
  - HYPERLIPIDAEMIA [None]
